FAERS Safety Report 20102424 (Version 1)
Quarter: 2021Q4

REPORT INFORMATION
  Report Type: Spontaneous
  Country: BE (occurrence: BE)
  Receive Date: 20211123
  Receipt Date: 20211123
  Transmission Date: 20220303
  Serious: Yes (Hospitalization)
  Sender: FDA-Public Use
  Company Number: BE-CELGENE-BEL-20210506631

PATIENT
  Age: 68 Year
  Sex: Male
  Weight: 93 kg

DRUGS (16)
  1. AZACITIDINE [Suspect]
     Active Substance: AZACITIDINE
     Indication: Myelodysplastic syndrome
     Dosage: 675 MILLIGRAM/SQ. METER, 28D CYCLE (75 MILLIGRAM/SQ. METER)
     Route: 058
     Dates: start: 20210104, end: 20210216
  2. AZACITIDINE [Suspect]
     Active Substance: AZACITIDINE
     Dosage: 506.25 MILLIGRAM/SQ. METER, Q28D, (56.25 MILLIGRAM/SQ. METER)
     Route: 058
     Dates: start: 20210322
  3. VENETOCLAX [Suspect]
     Active Substance: VENETOCLAX
     Indication: Myelodysplastic syndrome
     Dosage: UNK UNK, QD
     Route: 048
  4. CORDARONE [Concomitant]
     Active Substance: AMIODARONE HYDROCHLORIDE
     Indication: Angioplasty
     Dosage: 200 MILLIGRAM, QD
     Route: 048
     Dates: start: 2018
  5. BELSAR                             /01635402/ [Concomitant]
     Indication: Hypertension
     Dosage: 20 MILLIGRAM
     Route: 048
     Dates: start: 2020, end: 20210518
  6. BEFACT                             /00527001/ [Concomitant]
     Indication: Supplementation therapy
     Dosage: 1 DOSAGE FORM, QD
     Route: 048
     Dates: start: 2017
  7. BEFACT                             /00527001/ [Concomitant]
     Indication: Hypertension
     Dosage: UNK, QD
     Route: 048
     Dates: start: 2020, end: 20210518
  8. BISOPROLOL [Concomitant]
     Active Substance: BISOPROLOL
     Indication: Hypertension
     Dosage: 5 MILLIGRAM, QD
     Route: 048
     Dates: start: 2020
  9. VENLAFAXINE [Concomitant]
     Active Substance: VENLAFAXINE HYDROCHLORIDE
     Indication: Depression
     Dosage: 75 MILLIGRAM, QD
     Route: 048
     Dates: start: 2019
  10. XANAX [Concomitant]
     Active Substance: ALPRAZOLAM
     Indication: Anxiety
     Dosage: 0.5 MILLIGRAM
     Route: 048
     Dates: start: 20200201
  11. LERCANIDIPINE HYDROCHLORIDE [Concomitant]
     Active Substance: LERCANIDIPINE HYDROCHLORIDE
     Indication: Hypertension
     Dosage: 20 MILLIGRAM, QD
     Route: 048
     Dates: start: 202011
  12. PANTOMED                           /01263204/ [Concomitant]
     Indication: Prophylaxis against gastrointestinal ulcer
     Dosage: 40 MILLIGRAM, QD
     Route: 048
     Dates: start: 2020
  13. ACYCLOVIR                          /00587301/ [Concomitant]
     Indication: Antiviral prophylaxis
     Dosage: 1600 MILLIGRAM, QD
     Route: 048
     Dates: start: 20210104
  14. METFORMINE                         /00082701/ [Concomitant]
     Indication: Type 2 diabetes mellitus
     Dosage: 2000 MILLIGRAM, QD
     Route: 048
     Dates: start: 2019, end: 20210518
  15. LIPITOR [Concomitant]
     Active Substance: ATORVASTATIN CALCIUM
     Indication: Hypercholesterolaemia
     Dosage: 40 MILLIGRAM, QD
     Route: 048
     Dates: start: 2011
  16. DOMINAL                            /00018902/ [Concomitant]
     Indication: Insomnia
     Dosage: 80 MILLIGRAM, QD
     Route: 048
     Dates: start: 2016

REACTIONS (1)
  - Pneumocystis jirovecii pneumonia [Recovered/Resolved]

NARRATIVE: CASE EVENT DATE: 20210516
